FAERS Safety Report 4397591-6 (Version None)
Quarter: 2004Q3

REPORT INFORMATION
  Report Type: 
  Country: None (occurrence: None)
  Receive Date: 20040712
  Receipt Date: 20040706
  Transmission Date: 20050211
  Serious: Yes (Other)
  Sender: FDA-Public Use
  Company Number: 2004-07-0099

PATIENT
  Age: 54 Year
  Sex: Male

DRUGS (1)
  1. AERIOUS (DESLORATADINE) TABLETS 'LIKE CLARINEX' [Suspect]
     Dosage: 5 MG ORAL, 1 DOSE (S)
     Route: 048

REACTIONS (1)
  - PURPURA [None]
